FAERS Safety Report 17009111 (Version 1)
Quarter: 2019Q4

REPORT INFORMATION
  Report Type: Spontaneous
  Country: NG (occurrence: NG)
  Receive Date: 20191108
  Receipt Date: 20191108
  Transmission Date: 20200122
  Serious: Yes (Death)
  Sender: FDA-Public Use
  Company Number: NG-SCIEGEN PHARMACEUTICALS INC-2019SCILIT00345

PATIENT

DRUGS (6)
  1. GLIBENCLAMIDE [Suspect]
     Active Substance: GLYBURIDE
  2. NOVALGIN [Concomitant]
  3. LISINOPRIL. [Suspect]
     Active Substance: LISINOPRIL
  4. METFORMIN HYDROCHLORIDETABLETS [Suspect]
     Active Substance: METFORMIN HYDROCHLORIDE
  5. CHLOROQUINE. [Concomitant]
     Active Substance: CHLOROQUINE
  6. ACETYLSALICYLIC ACID [Suspect]
     Active Substance: ASPIRIN

REACTIONS (1)
  - Lip swelling [Fatal]
